FAERS Safety Report 4551933-7 (Version None)
Quarter: 2005Q1

REPORT INFORMATION
  Report Type: 
  Country: None (occurrence: None)
  Receive Date: 20050113
  Receipt Date: 20041229
  Transmission Date: 20050727
  Serious: Yes (Death)
  Sender: FDA-Public Use
  Company Number: 2004S1003558

PATIENT
  Age: 51 Year
  Sex: Female

DRUGS (9)
  1. CLOZAPINE [Suspect]
     Indication: SCHIZOPHRENIA
     Dosage: 300 MG TID, ORAL
     Route: 048
     Dates: start: 20030925, end: 20041128
  2. ACETAMINOPHEN AND TRAMADOL HCL [Concomitant]
  3. TOPIRAMATE [Concomitant]
  4. FOSINOPRIL/HCTZ [Concomitant]
  5. ESTRADIOL [Concomitant]
  6. CLONAZEPAM [Concomitant]
  7. ZIPRASIDONE [Concomitant]
  8. OXYCODONE HCL [Concomitant]
  9. DEXAMETHASONE [Concomitant]

REACTIONS (1)
  - LYMPHOCYTIC LEUKAEMIA [None]
